FAERS Safety Report 6860715-2 (Version None)
Quarter: 2010Q3

REPORT INFORMATION
  Report Type: 
  Country: None (occurrence: None)
  Receive Date: 20100719
  Receipt Date: 20100719
  Transmission Date: 20110219
  Serious: No
  Sender: FDA-Public Use
  Company Number: None

PATIENT
  Age: 5 Year
  Sex: Male
  Weight: 19.0511 kg

DRUGS (1)
  1. LISTERINE SMART RINSE POST BRUSH 500 ML SIZE BOTTLE JOHNSON AND JOHNSO [Suspect]
     Dosage: 10ML ONCE A DAY
     Dates: start: 20100711, end: 20100717

REACTIONS (2)
  - PRODUCT QUALITY ISSUE [None]
  - TOOTH DISCOLOURATION [None]
